FAERS Safety Report 13031447 (Version 1)
Quarter: 2016Q4

REPORT INFORMATION
  Report Type: Spontaneous
  Country: US (occurrence: US)
  Receive Date: 20161215
  Receipt Date: 20161215
  Transmission Date: 20170207
  Serious: No
  Sender: FDA-Public Use
  Company Number: US-GLAXOSMITHKLINE-US2016185310

PATIENT
  Sex: Male

DRUGS (4)
  1. ADVAIR DISKUS [Suspect]
     Active Substance: FLUTICASONE PROPIONATE\SALMETEROL XINAFOATE
     Indication: CHRONIC OBSTRUCTIVE PULMONARY DISEASE
     Dosage: 1 PUFF(S), BID
     Route: 055
     Dates: start: 20161211
  2. PROAIR HFA [Concomitant]
     Active Substance: ALBUTEROL SULFATE
  3. IPRATROPIUM NEBULIZER [Concomitant]
  4. LEVALBUTEROL NEBULIZER [Concomitant]
     Active Substance: LEVALBUTEROL

REACTIONS (1)
  - Drug ineffective [Unknown]
